FAERS Safety Report 8766410 (Version 2)
Quarter: 2012Q4

REPORT INFORMATION
  Report Type: Report from Study
  Country: US (occurrence: US)
  Receive Date: 20120904
  Receipt Date: 20120904
  Transmission Date: 20130627
  Serious: Yes (Other)
  Sender: FDA-Public Use
  Company Number: US-ROCHE-1104763

PATIENT
  Age: 49 Year
  Sex: Female
  Weight: 61.74 kg

DRUGS (2)
  1. AVASTIN [Suspect]
     Indication: COLORECTAL CANCER METASTATIC
     Route: 042
     Dates: start: 201203
  2. 5-FU [Concomitant]
     Indication: COLORECTAL CANCER METASTATIC
     Route: 042
     Dates: start: 201208

REACTIONS (3)
  - Lung neoplasm malignant [Not Recovered/Not Resolved]
  - Catheter site pain [Not Recovered/Not Resolved]
  - Hypertension [Not Recovered/Not Resolved]
